FAERS Safety Report 8315576-1 (Version None)
Quarter: 2012Q2

REPORT INFORMATION
  Report Type: 
  Country: None (occurrence: None)
  Receive Date: 20120426
  Receipt Date: 20120419
  Transmission Date: 20120825
  Serious: Yes (Other)
  Sender: FDA-Public Use
  Company Number: US-TEVA-334302USA

PATIENT
  Sex: Female
  Weight: 63.56 kg

DRUGS (14)
  1. OMEPRAZOLE [Concomitant]
  2. FENTANYL [Concomitant]
  3. VISQUID [Concomitant]
  4. VITAMIN B COMPLEX CAP [Concomitant]
     Dosage: MONTHLY
  5. TIZANIDINE HYDROCHLORIDE [Concomitant]
  6. HYDROXYZINE HYDROCHLORIDE [Concomitant]
  7. FENTORA [Suspect]
     Indication: BACK PAIN
     Route: 002
  8. POTASSIUM CHLORIDE [Concomitant]
  9. GLYCERYL TRINITRATE [Concomitant]
  10. LEVOTHYROXINE SODIUM [Concomitant]
  11. NADOLOL [Concomitant]
     Indication: BLOOD PRESSURE ABNORMAL
  12. TRAMADOL HCL [Concomitant]
     Route: 048
  13. PRISTIQ [Concomitant]
  14. ALPRAZOLAM [Concomitant]

REACTIONS (4)
  - THROMBOSIS [None]
  - OFF LABEL USE [None]
  - PAIN IN EXTREMITY [None]
  - DRUG PRESCRIBING ERROR [None]
